FAERS Safety Report 6011932-5 (Version None)
Quarter: 2008Q4

REPORT INFORMATION
  Report Type: 
  Country: None (occurrence: None)
  Receive Date: 20081218
  Receipt Date: 20081006
  Transmission Date: 20090506
  Serious: No
  Sender: FDA-Public Use
  Company Number: US-ASTRAZENECA-2008UW21784

PATIENT
  Age: 81 Year
  Sex: Female
  Weight: 56.7 kg

DRUGS (7)
  1. CRESTOR [Suspect]
     Indication: BLOOD CHOLESTEROL INCREASED
     Route: 048
     Dates: start: 20080929
  2. ADVAIR DISKUS 250/50 [Concomitant]
  3. NASONEX [Concomitant]
  4. ASTELIN [Concomitant]
  5. PROCARDIA XL [Concomitant]
  6. THEO-24 [Concomitant]
  7. GLUCOTROL [Concomitant]

REACTIONS (1)
  - SLEEP DISORDER [None]
